FAERS Safety Report 12235926 (Version 2)
Quarter: 2017Q2

REPORT INFORMATION
  Report Type: Spontaneous
  Country: CZ (occurrence: CZ)
  Receive Date: 20160404
  Receipt Date: 20170518
  Transmission Date: 20170830
  Serious: Yes (Death, Other)
  Sender: FDA-Public Use
  Company Number: CZ-ASTELLAS-2016US012695

PATIENT
  Age: 68 Year
  Sex: Male

DRUGS (2)
  1. ERLOTINIB [Suspect]
     Active Substance: ERLOTINIB
     Indication: SQUAMOUS CELL CARCINOMA OF LUNG
     Dosage: UNK UNK, UNKNOWN FREQ.
     Route: 065
     Dates: start: 201001
  2. ERLOTINIB [Suspect]
     Active Substance: ERLOTINIB
     Dosage: THIRD LINE TREATMENT (100 MG,1 IN 1 D)
     Route: 065
     Dates: start: 201010

REACTIONS (7)
  - Rash [Unknown]
  - Femur fracture [Unknown]
  - Transaminases increased [Unknown]
  - Conjunctivitis [Unknown]
  - Death [Fatal]
  - Diarrhoea [Unknown]
  - Paronychia [Unknown]

NARRATIVE: CASE EVENT DATE: 201304
